FAERS Safety Report 5864403-0 (Version None)
Quarter: 2008Q3

REPORT INFORMATION
  Report Type: 
  Country: None (occurrence: None)
  Receive Date: 20080829
  Receipt Date: 20080818
  Transmission Date: 20090109
  Serious: Yes (Death, Life-Threatening, Hospitalization, Disabling, Other)
  Sender: FDA-Public Use
  Company Number: GB-ELI_LILLY_AND_COMPANY-GB200802001452

PATIENT
  Sex: Female
  Weight: 90.4 kg

DRUGS (11)
  1. FORTEO [Suspect]
     Indication: OSTEOPOROSIS
     Dosage: 20 UG, DAILY (1/D)
     Route: 058
     Dates: start: 20070918, end: 20071106
  2. WARFARIN SODIUM [Concomitant]
     Dosage: 2 MG, UNKNOWN
     Route: 048
  3. THYROXINE [Concomitant]
     Dosage: 100 UG, DAILY (1/D)
     Route: 048
  4. CALCEOS [Concomitant]
     Dosage: UNK, UNKNOWN
     Route: 065
  5. FRUSEMIDE [Concomitant]
     Dosage: 20 MG, DAILY (1/D)
     Route: 065
  6. SPIRONOLACTONE [Concomitant]
     Dosage: 25 MG, DAILY (1/D)
     Route: 065
  7. SIMVASTATIN [Concomitant]
     Dosage: UNK, UNKNOWN
     Route: 065
  8. MOVICOL [Concomitant]
     Dosage: UNK, UNKNOWN
     Route: 065
  9. SOTALOL HCL [Concomitant]
     Dosage: UNK, UNKNOWN
     Route: 066
  10. AMIODARONE [Concomitant]
     Dosage: 400 MG, DAILY (1/D)
  11. BISOPROLOL FUMARATE [Concomitant]
     Dosage: 2.5 MG, DAILY (1/D)
     Route: 065

REACTIONS (9)
  - ACUTE RESPIRATORY DISTRESS SYNDROME [None]
  - CARDIAC FAILURE CONGESTIVE [None]
  - CLOSTRIDIUM DIFFICILE SEPSIS [None]
  - DIZZINESS [None]
  - MALAISE [None]
  - PEMPHIGOID [None]
  - RENAL FAILURE ACUTE [None]
  - SPINAL FRACTURE [None]
  - URINARY TRACT INFECTION [None]
